FAERS Safety Report 9974536 (Version 1)
Quarter: 2014Q1

REPORT INFORMATION
  Report Type: Report from Study
  Country: US (occurrence: US)
  Receive Date: 20140306
  Receipt Date: 20140306
  Transmission Date: 20141002
  Serious: No
  Sender: FDA-Public Use
  Company Number: US-ABBVIE-13P-163-1159143-00

PATIENT
  Age: 5 Year
  Sex: Male

DRUGS (5)
  1. HUMIRA [Suspect]
     Indication: JUVENILE IDIOPATHIC ARTHRITIS
     Dates: start: 20130806
  2. PRO AIR [Concomitant]
     Indication: ASTHMA
  3. DEPAKOTE [Concomitant]
     Indication: CONVULSION
     Dosage: WITH FOOD
  4. NAPROXEN [Concomitant]
     Indication: PAIN
     Dosage: 125/5MG MG AS NEEDED
  5. ALBUTEROL [Concomitant]
     Indication: ASTHMA

REACTIONS (1)
  - Injection site mass [Not Recovered/Not Resolved]
